FAERS Safety Report 16566777 (Version 1)
Quarter: 2019Q3

REPORT INFORMATION
  Report Type: Spontaneous
  Country: CA (occurrence: CA)
  Receive Date: 20190712
  Receipt Date: 20190712
  Transmission Date: 20191004
  Serious: Yes (Other)
  Sender: FDA-Public Use
  Company Number: CA-BAUSCH-BL-2019-019637

PATIENT
  Age: 63 Year
  Sex: Male

DRUGS (4)
  1. FLUOROURACIL. [Suspect]
     Active Substance: FLUOROURACIL
     Indication: ANAL CANCER
     Route: 065
  2. DUTASTERIDE. [Concomitant]
     Active Substance: DUTASTERIDE
     Indication: BENIGN PROSTATIC HYPERPLASIA
  3. TAMSULOSIN [Concomitant]
     Active Substance: TAMSULOSIN
     Indication: BENIGN PROSTATIC HYPERPLASIA
  4. MITOMYCIN C [Suspect]
     Active Substance: MITOMYCIN
     Indication: ANAL CANCER
     Route: 065

REACTIONS (6)
  - Skin reaction [Unknown]
  - Neutropenia [Unknown]
  - Thrombocytopenia [Unknown]
  - Stomatitis [Unknown]
  - Diarrhoea [Unknown]
  - Perineal disorder [Unknown]
